FAERS Safety Report 24732052 (Version 2)
Quarter: 2024Q4

REPORT INFORMATION
  Report Type: Spontaneous
  Country: US (occurrence: US)
  Receive Date: 20241213
  Receipt Date: 20241219
  Transmission Date: 20250115
  Serious: No
  Sender: PFIZER
  Company Number: US-PFIZER INC-202400321942

PATIENT
  Age: 15 Year
  Weight: 45.351 kg

DRUGS (2)
  1. GENOTROPIN [Suspect]
     Active Substance: SOMATROPIN
     Indication: Short-bowel syndrome
     Dosage: 1.8 MG (ALTERNATES 1.8 MG AND 2.0 MG)
  2. GENOTROPIN [Suspect]
     Active Substance: SOMATROPIN
     Dosage: 2.0 MG (ALTERNATES 1.8MG AND 2.0 MG)

REACTIONS (4)
  - Device defective [Unknown]
  - Needle issue [Unknown]
  - Off label use [Unknown]
  - Drug dose omission by device [Unknown]
